FAERS Safety Report 4547254-9 (Version None)
Quarter: 2005Q1

REPORT INFORMATION
  Report Type: 
  Country: None (occurrence: None)
  Receive Date: 20050107
  Receipt Date: 20030605
  Transmission Date: 20050727
  Serious: Yes (Life-Threatening, Hospitalization, Disabling, Other)
  Sender: FDA-Public Use
  Company Number: US-MERCK-0306USA00882

PATIENT
  Age: 67 Year
  Sex: Female

DRUGS (12)
  1. VIOXX [Suspect]
     Route: 048
  2. MONOPRIL [Concomitant]
     Route: 065
     Dates: end: 20010813
  3. ZOCOR [Concomitant]
     Route: 065
  4. PROZAC [Concomitant]
     Route: 065
  5. ULTRAM [Concomitant]
     Route: 065
  6. MOTRIN [Concomitant]
     Route: 065
  7. ATIVAN [Concomitant]
     Route: 065
  8. ANALGESIC OR ANESTHETIC (UNSPECIFIED) [Concomitant]
     Route: 065
     Dates: start: 20030801
  9. MURO 128 OPHTHALMIC OINTMENT [Concomitant]
     Route: 047
  10. ARTIFICIAL TEARS [Concomitant]
     Route: 047
  11. LIPITOR [Concomitant]
     Route: 065
  12. ESTRADIOL [Concomitant]
     Route: 065

REACTIONS (40)
  - ABNORMAL SENSATION IN EYE [None]
  - ADVERSE EVENT [None]
  - ANGIONEUROTIC OEDEMA [None]
  - BLOOD CHOLESTEROL INCREASED [None]
  - BREAST MASS [None]
  - BRONCHITIS [None]
  - BURSITIS [None]
  - CARDIAC VALVE DISEASE [None]
  - CARDIOMEGALY [None]
  - CATARACT [None]
  - CHONDROMALACIA [None]
  - CHRONIC OBSTRUCTIVE PULMONARY DISEASE [None]
  - CONJUNCTIVAL HAEMORRHAGE [None]
  - CONSTIPATION [None]
  - COSTOCHONDRITIS [None]
  - CYSTITIS [None]
  - DIVERTICULITIS [None]
  - DIVERTICULUM [None]
  - DYSPNOEA [None]
  - EAR CONGESTION [None]
  - FALL [None]
  - HEART RATE INCREASED [None]
  - JOINT EFFUSION [None]
  - KERATITIS [None]
  - LUMBAR RADICULOPATHY [None]
  - LYMPHADENOPATHY [None]
  - MENISCUS LESION [None]
  - MITRAL VALVE INCOMPETENCE [None]
  - OSTEOARTHRITIS [None]
  - OSTEOPETROSIS [None]
  - PHOTOPHOBIA [None]
  - POLYTRAUMATISM [None]
  - RESPIRATORY FAILURE [None]
  - ROAD TRAFFIC ACCIDENT [None]
  - SINUSITIS [None]
  - SPINAL COLUMN STENOSIS [None]
  - SYNCOPE [None]
  - TRICUSPID VALVE INCOMPETENCE [None]
  - VARICOSE VEIN [None]
  - VULVOVAGINAL DISCOMFORT [None]
